FAERS Safety Report 7864556-9 (Version None)
Quarter: 2011Q4

REPORT INFORMATION
  Report Type: 
  Country: None (occurrence: None)
  Receive Date: 20111028
  Receipt Date: 20111024
  Transmission Date: 20120403
  Serious: Yes (Other)
  Sender: FDA-Public Use
  Company Number: US-PFIZER INC-2011260135

PATIENT
  Age: 44 Year
  Sex: Female
  Weight: 74.83 kg

DRUGS (3)
  1. LYRICA [Suspect]
     Indication: FIBROMYALGIA
     Dosage: 75 MG, 2X/DAY
     Route: 048
     Dates: start: 20110101
  2. CITALOPRAM [Concomitant]
     Dosage: UNK
  3. ESTRADIOL [Concomitant]
     Dosage: UNK

REACTIONS (1)
  - WEIGHT INCREASED [None]
